FAERS Safety Report 9832368 (Version 2)
Quarter: 2014Q1

REPORT INFORMATION
  Report Type: Spontaneous
  Country: CA (occurrence: CA)
  Receive Date: 20140121
  Receipt Date: 20140121
  Transmission Date: 20141002
  Serious: Yes (Hospitalization, Other)
  Sender: FDA-Public Use
  Company Number: CA-BAXTER-2013BAX053693

PATIENT
  Sex: Female

DRUGS (1)
  1. DIANEAL PD4 SOLUTION WITH 2.5% DEXTROSE AND 2.5 MEQ/L CALCIUM [Suspect]
     Indication: PERITONEAL DIALYSIS
     Dosage: 3 BAGS
     Route: 033

REACTIONS (4)
  - Oesophageal rupture [Recovered/Resolved]
  - Influenza [Recovered/Resolved]
  - Haemoptysis [Recovered/Resolved]
  - Vomiting [Not Recovered/Not Resolved]
